FAERS Safety Report 24173210 (Version 1)
Quarter: 2024Q3

REPORT INFORMATION
  Report Type: Spontaneous
  Country: CN (occurrence: CN)
  Receive Date: 20240805
  Receipt Date: 20240805
  Transmission Date: 20241016
  Serious: Yes (Life-Threatening, Hospitalization)
  Sender: BAYER
  Company Number: CN-BAYER-2024A112647

PATIENT
  Age: 58 Year
  Sex: Male
  Weight: 60 kg

DRUGS (3)
  1. ULTRAVIST [Suspect]
     Active Substance: IOPROMIDE
     Indication: Computerised tomogram head
     Dosage: 115 ML, ONCE
     Route: 040
     Dates: start: 20240802, end: 20240802
  2. ULTRAVIST [Suspect]
     Active Substance: IOPROMIDE
     Indication: Arteriogram carotid
  3. ULTRAVIST [Suspect]
     Active Substance: IOPROMIDE
     Indication: Thalamic infarction

REACTIONS (13)
  - Contrast media allergy [Recovering/Resolving]
  - Discomfort [None]
  - Hyperhidrosis [None]
  - Mouth breathing [None]
  - Eyelid oedema [None]
  - Rash macular [None]
  - Blood pressure diastolic decreased [Recovered/Resolved]
  - Asthenia [None]
  - Depressed mood [None]
  - Vomiting [None]
  - Conjunctival oedema [None]
  - Mouth swelling [None]
  - Pruritus [None]

NARRATIVE: CASE EVENT DATE: 20240802
